FAERS Safety Report 10186082 (Version 2)
Quarter: 2014Q2

REPORT INFORMATION
  Report Type: Spontaneous
  Country: US (occurrence: US)
  Receive Date: 20140521
  Receipt Date: 20140521
  Transmission Date: 20141212
  Serious: Yes (Other)
  Sender: FDA-Public Use
  Company Number: CHPA2014US006230

PATIENT
  Age: 55 Year
  Sex: Female

DRUGS (1)
  1. VOLTAREN GEL [Suspect]
     Route: 061

REACTIONS (1)
  - Rectal haemorrhage [Recovered/Resolved]
